FAERS Safety Report 5553338-9 (Version None)
Quarter: 2007Q4

REPORT INFORMATION
  Report Type: 
  Country: None (occurrence: None)
  Receive Date: 20071212
  Receipt Date: 20071212
  Transmission Date: 20080405
  Serious: Yes (Other)
  Sender: FDA-Public Use
  Company Number: None

PATIENT
  Sex: Male
  Weight: 74.8435 kg

DRUGS (1)
  1. ZOLPIDEM [Suspect]
     Indication: SOMNOLENCE
     Dosage: 10 MG QHS PO
     Route: 048
     Dates: start: 20071105, end: 20071114

REACTIONS (2)
  - POOR QUALITY SLEEP [None]
  - THERAPEUTIC RESPONSE UNEXPECTED WITH DRUG SUBSTITUTION [None]
